FAERS Safety Report 24174520 (Version 2)
Quarter: 2024Q3

REPORT INFORMATION
  Report Type: Spontaneous
  Country: US (occurrence: US)
  Receive Date: 20240805
  Receipt Date: 20240913
  Transmission Date: 20241017
  Serious: Yes (Death, Other)
  Sender: AUROBINDO
  Company Number: US-AUROBINDO-AUR-APL-2024-038766

PATIENT
  Age: 27 Year
  Sex: Female
  Weight: 122.4 kg

DRUGS (2)
  1. MILI [Suspect]
     Active Substance: ETHINYL ESTRADIOL\NORGESTIMATE
     Indication: Contraception
     Dosage: 1 DOSAGE FORM, ONCE A DAY (ONE PILL A DAY FOR 28 DAYS I.E 28 CYCLES)
     Route: 048
     Dates: end: 20240228
  2. INTUNIV [Concomitant]
     Active Substance: GUANFACINE HYDROCHLORIDE
     Indication: Product used for unknown indication
     Dosage: UNK
     Route: 065

REACTIONS (2)
  - Death [Fatal]
  - Pulmonary embolism [Fatal]
